FAERS Safety Report 9639509 (Version 1)
Quarter: 2013Q4

REPORT INFORMATION
  Report Type: Spontaneous
  Country: IE (occurrence: IE)
  Receive Date: 20131023
  Receipt Date: 20131023
  Transmission Date: 20140711
  Serious: Yes (Life-Threatening, Hospitalization)
  Sender: FDA-Public Use
  Company Number: IE-AMGEN-IRLSP2013074312

PATIENT
  Age: 39 Year
  Sex: Female

DRUGS (2)
  1. ENBREL [Suspect]
     Indication: RHEUMATOID ARTHRITIS
     Dosage: 50 MG, WEEKLY
     Route: 058
     Dates: start: 201008, end: 201109
  2. NUROFEN                            /00109201/ [Concomitant]
     Dosage: UNK UNK, UNK

REACTIONS (1)
  - Thyroid B-cell lymphoma [Recovered/Resolved]
